FAERS Safety Report 24310460 (Version 3)
Quarter: 2025Q2

REPORT INFORMATION
  Report Type: Spontaneous
  Country: MT (occurrence: MT)
  Receive Date: 20240912
  Receipt Date: 20250522
  Transmission Date: 20250717
  Serious: Yes (Life-Threatening, Hospitalization, Other)
  Sender: AUROBINDO
  Company Number: MT-AUROBINDO-AUR-APL-2024-044328

PATIENT
  Sex: Male

DRUGS (6)
  1. PIPERACILLIN AND TAZOBACTAM [Suspect]
     Active Substance: PIPERACILLIN SODIUM\TAZOBACTAM SODIUM
     Indication: Leptospirosis
     Dosage: 4.5 GRAM, TWO TIMES A DAY
     Route: 042
  2. PIPERACILLIN AND TAZOBACTAM [Suspect]
     Active Substance: PIPERACILLIN SODIUM\TAZOBACTAM SODIUM
     Indication: Infection
  3. DOXYCYCLINE [Suspect]
     Active Substance: DOXYCYCLINE
     Indication: Leptospirosis
     Dosage: 100 MILLIGRAM, TWO TIMES A DAY
     Route: 042
  4. DOXYCYCLINE [Suspect]
     Active Substance: DOXYCYCLINE
     Indication: Infection
  5. URSODIOL [Concomitant]
     Active Substance: URSODIOL
     Indication: Liver injury
     Route: 065
  6. SOFOSBUVIR AND VELPATASVIR [Concomitant]
     Active Substance: SOFOSBUVIR\VELPATASVIR
     Indication: Hepatitis C
     Route: 065

REACTIONS (2)
  - Jarisch-Herxheimer reaction [Recovering/Resolving]
  - Septic shock [Recovered/Resolved]
